FAERS Safety Report 20876029 (Version 1)
Quarter: 2022Q2

REPORT INFORMATION
  Report Type: Spontaneous
  Country: US (occurrence: US)
  Receive Date: 20220526
  Receipt Date: 20220526
  Transmission Date: 20220721
  Serious: No
  Sender: FDA-Public Use
  Company Number: US-drreddys-SPO/USA/22/0150048

PATIENT
  Age: 18 Year
  Sex: Female

DRUGS (1)
  1. ZENATANE [Suspect]
     Active Substance: ISOTRETINOIN
     Indication: Acne cystic
     Dosage: RMA ISSUE DATE?07 APRIL 2022 05:28:33 PM, 04 MARCH 2022 10:02:08 AM, 10 OCTOBER 2022 01:18:50 PM, 15

REACTIONS (1)
  - Treatment noncompliance [Unknown]
